FAERS Safety Report 15288624 (Version 3)
Quarter: 2018Q4

REPORT INFORMATION
  Report Type: Report from Study
  Country: MX (occurrence: MX)
  Receive Date: 20180817
  Receipt Date: 20181004
  Transmission Date: 20190204
  Serious: Yes (Hospitalization)
  Sender: FDA-Public Use
  Company Number: MX-ASTRAZENECA-2018SF03074

PATIENT
  Age: 33131 Day
  Sex: Female

DRUGS (1)
  1. AZD6140 [Suspect]
     Active Substance: TICAGRELOR
     Indication: CARDIOVASCULAR EVENT PROPHYLAXIS
     Route: 048
     Dates: start: 20180809, end: 20180911

REACTIONS (1)
  - Costochondritis [Recovered/Resolved]

NARRATIVE: CASE EVENT DATE: 20180809
